FAERS Safety Report 25125554 (Version 1)
Quarter: 2025Q1

REPORT INFORMATION
  Report Type: Spontaneous
  Country: US (occurrence: US)
  Receive Date: 20250326
  Receipt Date: 20250326
  Transmission Date: 20250409
  Serious: No
  Sender: PFIZER
  Company Number: US-PFIZER INC-PV202300115446

PATIENT
  Age: 60 Year
  Sex: Female

DRUGS (1)
  1. BOSULIF [Suspect]
     Active Substance: BOSUTINIB MONOHYDRATE
     Dosage: 100 MG, DAILY (TAKE ONE TABLET BY MOUTH ONCE DAILY WITH FOOD, TWO DAYS A WEEK)
     Route: 048

REACTIONS (2)
  - Full blood count abnormal [Unknown]
  - Off label use [Unknown]
